FAERS Safety Report 8228002-8 (Version None)
Quarter: 2012Q1

REPORT INFORMATION
  Report Type: 
  Country: None (occurrence: None)
  Receive Date: 20120322
  Receipt Date: 20120126
  Transmission Date: 20120608
  Serious: No
  Sender: FDA-Public Use
  Company Number: US-BRISTOL-MYERS SQUIBB COMPANY-16369167

PATIENT
  Age: 54 Year
  Sex: Female

DRUGS (2)
  1. ERBITUX [Suspect]
     Indication: HEPATIC NEOPLASM MALIGNANT
     Dosage: 5 OR 6 TREATMENTS WITH ERBITUX
  2. BENADRYL [Concomitant]

REACTIONS (2)
  - DRY SKIN [None]
  - PRURITUS [None]
